FAERS Safety Report 17090826 (Version 1)
Quarter: 2019Q4

REPORT INFORMATION
  Report Type: Spontaneous
  Country: HR (occurrence: HR)
  Receive Date: 20191129
  Receipt Date: 20191129
  Transmission Date: 20200122
  Serious: Yes (Other)
  Sender: FDA-Public Use
  Company Number: HR-ROCHE-2478448

PATIENT
  Sex: Male

DRUGS (4)
  1. ELICEA [Suspect]
     Active Substance: ESCITALOPRAM OXALATE
     Indication: PRODUCT USED FOR UNKNOWN INDICATION
     Dosage: MOST RECENT DOSE PRIOR TO AE 07/SEP/2019
     Route: 048
     Dates: start: 20190907
  2. RIVOTRIL [Suspect]
     Active Substance: CLONAZEPAM
     Indication: PRODUCT USED FOR UNKNOWN INDICATION
     Dosage: MOST RECENT DOSE PRIOR TO AE 07/SEP/2019
     Route: 048
     Dates: start: 20190907
  3. Q-PIN [Suspect]
     Active Substance: QUETIAPINE FUMARATE
     Indication: PRODUCT USED FOR UNKNOWN INDICATION
     Dosage: MOST RECENT DOSE PRIOR TO AE 07/SEP/2019
     Route: 048
     Dates: start: 20190907
  4. LAMICTAL [Suspect]
     Active Substance: LAMOTRIGINE
     Indication: PRODUCT USED FOR UNKNOWN INDICATION
     Dosage: MOST RECENT DOSE PRIOR TO AE 07/SEP/2019
     Route: 048
     Dates: start: 20190907

REACTIONS (3)
  - Intentional overdose [Unknown]
  - Sluggishness [Unknown]
  - Suicide attempt [Unknown]

NARRATIVE: CASE EVENT DATE: 20190907
